FAERS Safety Report 5511423-1 (Version None)
Quarter: 2007Q4

REPORT INFORMATION
  Report Type: 
  Country: None (occurrence: None)
  Receive Date: 20071107
  Receipt Date: 20071025
  Transmission Date: 20080405
  Serious: Yes (Hospitalization, Other)
  Sender: FDA-Public Use
  Company Number: PAR_01743_2007

PATIENT
  Age: 24 Year
  Sex: Female

DRUGS (4)
  1. IBUPROFEN [Suspect]
     Indication: INFLUENZA LIKE ILLNESS
     Dosage: (DF)
  2. ACETAMINOPHEN [Suspect]
     Indication: INFLUENZA LIKE ILLNESS
     Dosage: (DF)
  3. ALPRAZOLAM [Concomitant]
  4. ESCITALOPRAM [Concomitant]

REACTIONS (4)
  - ACUTE RESPIRATORY FAILURE [None]
  - ALVEOLITIS [None]
  - INTERSTITIAL LUNG DISEASE [None]
  - PULMONARY EOSINOPHILIA [None]
